FAERS Safety Report 7549427-X (Version None)
Quarter: 2011Q2

REPORT INFORMATION
  Report Type: 
  Country: None (occurrence: None)
  Receive Date: 20110615
  Receipt Date: 20040924
  Transmission Date: 20111010
  Serious: Yes (Hospitalization)
  Sender: FDA-Public Use
  Company Number: PHFR2004GB02803

PATIENT
  Sex: Female

DRUGS (4)
  1. VENLAFAXINE [Concomitant]
     Dosage: 225 MG, QD
  2. CELECOXIB [Concomitant]
     Dosage: 100 MG, BID
  3. METFORMIN HCL [Concomitant]
     Dosage: 500 MG, BID
  4. CLOZAPINE [Suspect]
     Indication: SCHIZOPHRENIA
     Dosage: 425 MG, QD
     Route: 048
     Dates: start: 19920629

REACTIONS (2)
  - GASTROINTESTINAL HAEMORRHAGE [None]
  - HAEMATEMESIS [None]
